FAERS Safety Report 9116581 (Version 2)
Quarter: 2016Q3

REPORT INFORMATION
  Report Type: Spontaneous
  Country: GB (occurrence: GB)
  Receive Date: 20130225
  Receipt Date: 20160726
  Transmission Date: 20161109
  Serious: Yes (Hospitalization, Other)
  Sender: FDA-Public Use
  Company Number: PHHY2013GB015727

PATIENT
  Age: 66 Year
  Sex: Female

DRUGS (10)
  1. TINZAPARIN [Concomitant]
     Active Substance: TINZAPARIN
     Dosage: 13000IU DAILY
     Route: 058
     Dates: start: 20091205
  2. TINZAPARIN [Concomitant]
     Active Substance: TINZAPARIN
     Indication: PULMONARY EMBOLISM
     Dosage: 13000 IU, QD
     Route: 058
     Dates: start: 20091205
  3. METHOTREXATE. [Suspect]
     Active Substance: METHOTREXATE
     Dosage: 7.5 MG, UNK
     Dates: start: 20100111
  4. CALCIUM FOLINATE [Concomitant]
     Active Substance: LEUCOVORIN CALCIUM
     Dosage: UNK
  5. IBANDRONIC ACID [Concomitant]
     Active Substance: IBANDRONIC ACID
     Indication: METASTASES TO BONE
     Dosage: 50 MG, QD
     Route: 048
     Dates: start: 20090804
  6. COCODAMOL [Concomitant]
     Active Substance: ACETAMINOPHEN\CODEINE PHOSPHATE
     Indication: PRODUCT USED FOR UNKNOWN INDICATION
     Dosage: 6 DOSES OF UNKNOWN STRENGTH EVERY 24 HOURS WHEN NEEDED
     Route: 065
  7. METHOTREXATE. [Suspect]
     Active Substance: METHOTREXATE
     Indication: METASTASES TO MENINGES
     Dosage: 12.5 MG, QW2
     Route: 037
     Dates: start: 20091216, end: 20091218
  8. QUININE [Concomitant]
     Active Substance: QUININE
     Indication: MUSCLE SPASMS
     Dosage: UNK UNK, AS NEEDED
     Route: 065
  9. CALCIUM FOLINATE [Concomitant]
     Active Substance: LEUCOVORIN CALCIUM
     Indication: SALVAGE THERAPY
     Route: 065
  10. IBANDRONIC ACID [Concomitant]
     Active Substance: IBANDRONIC ACID
     Dosage: 50 MG, 1X/DAY
     Route: 048
     Dates: start: 20090804

REACTIONS (6)
  - Eczema asteatotic [Recovered/Resolved]
  - Clostridium difficile colitis [Recovered/Resolved]
  - Neutropenia [Recovered/Resolved]
  - Stomatitis [Recovered/Resolved]
  - Thrombocytopenia [Recovered/Resolved]
  - Pancytopenia [Recovered/Resolved]

NARRATIVE: CASE EVENT DATE: 20091218
